FAERS Safety Report 25406003 (Version 1)
Quarter: 2025Q2

REPORT INFORMATION
  Report Type: Spontaneous
  Country: US (occurrence: US)
  Receive Date: 20250606
  Receipt Date: 20250606
  Transmission Date: 20250717
  Serious: No
  Sender: PIERRE FABRE MEDICAMENT
  Company Number: US-PFM-2024-05451

PATIENT
  Age: 0 Year
  Sex: Female
  Weight: 5.7 kg

DRUGS (2)
  1. HEMANGEOL [Suspect]
     Active Substance: PROPRANOLOL HYDROCHLORIDE
     Indication: Haemangioma
     Dosage: 1.4 ML, BID (2/DAY)
     Dates: start: 20240716
  2. Vitamin D drops 400u/ml [Concomitant]
     Indication: Product used for unknown indication
     Route: 065

REACTIONS (3)
  - Screaming [Unknown]
  - Crying [Unknown]
  - Nightmare [Unknown]

NARRATIVE: CASE EVENT DATE: 20240901
